FAERS Safety Report 9157876 (Version 2)
Quarter: 2013Q2

REPORT INFORMATION
  Report Type: Spontaneous
  Country: AU (occurrence: AU)
  Receive Date: 20130312
  Receipt Date: 20130415
  Transmission Date: 20140414
  Serious: Yes (Other)
  Sender: FDA-Public Use
  Company Number: PHHY2013AU019939

PATIENT
  Age: 50 Year
  Sex: Female

DRUGS (5)
  1. GALVUS MET [Suspect]
     Dosage: 1 DF (1000 MG METF + 50 MG VILD), UNK
     Route: 048
     Dates: start: 20130129, end: 201302
  2. EXFORGE [Suspect]
     Dosage: UNK UKN, UNK
  3. TENORMIN [Suspect]
     Indication: HYPERTENSION
     Dosage: 50 MG, UNK
     Dates: start: 2008
  4. LIPITOR [Suspect]
     Dosage: 20 MG, UNK
  5. NORVASC [Concomitant]
     Indication: HYPERTENSION
     Dosage: 100 UKN, UNK
     Route: 048
     Dates: start: 2010

REACTIONS (2)
  - Renal failure acute [Not Recovered/Not Resolved]
  - Blood creatinine increased [Not Recovered/Not Resolved]
